FAERS Safety Report 7709435-2 (Version None)
Quarter: 2011Q3

REPORT INFORMATION
  Report Type: 
  Country: None (occurrence: None)
  Receive Date: 20110825
  Receipt Date: 20110822
  Transmission Date: 20111222
  Serious: Yes (Other)
  Sender: FDA-Public Use
  Company Number: DE-PFIZER INC-2011139547

PATIENT
  Age: 26 Year
  Sex: Male

DRUGS (3)
  1. VENLAFAXINE HCL [Suspect]
     Indication: IMPULSE-CONTROL DISORDER
  2. VENLAFAXINE HCL [Suspect]
     Indication: DEPRESSION
     Dosage: 150MG IN THE MORNING AND 75MG AT NOON
     Route: 048
     Dates: start: 20110520
  3. VENLAFAXINE HCL [Suspect]
     Indication: AFFECT LABILITY

REACTIONS (3)
  - TENSION [None]
  - INTENTIONAL SELF-INJURY [None]
  - HAND FRACTURE [None]
